FAERS Safety Report 8346922-0 (Version None)
Quarter: 2012Q2

REPORT INFORMATION
  Report Type: 
  Country: None (occurrence: None)
  Receive Date: 20120509
  Receipt Date: 20120504
  Transmission Date: 20120825
  Serious: Yes (Other)
  Sender: FDA-Public Use
  Company Number: PHHY2012BR037425

PATIENT
  Age: 60 Year
  Sex: Female

DRUGS (2)
  1. FLUOXETINE [Suspect]
     Dosage: UNK UKN, UNK
  2. PAROXETINE [Suspect]
     Dosage: UNK UKN, UNK

REACTIONS (2)
  - MACULE [None]
  - DERMATOSIS [None]
